FAERS Safety Report 13368977 (Version 2)
Quarter: 2020Q3

REPORT INFORMATION
  Report Type: Report from Study
  Country: DE (occurrence: DE)
  Receive Date: 20170324
  Receipt Date: 20170427
  Transmission Date: 20201105
  Serious: Yes (Hospitalization)
  Sender: FDA-Public Use
  Company Number: GB-ASTRAZENECA-2017SE29364

PATIENT
  Age: 80 Year
  Sex: Female

DRUGS (5)
  1. L?THYROXIN [Concomitant]
     Active Substance: LEVOTHYROXINE SODIUM
     Dosage: 25 UG 1?0?0
  2. FULVESTRANT. [Suspect]
     Active Substance: FULVESTRANT
     Indication: HORMONE RECEPTOR POSITIVE BREAST CANCER
     Dosage: 2X250 MG Q4W
     Route: 030
     Dates: start: 20150121
  3. VISTUSERTIB. [Suspect]
     Active Substance: VISTUSERTIB
     Indication: HORMONE RECEPTOR POSITIVE BREAST CANCER
     Route: 048
     Dates: start: 20150121
  4. VITAMIN D2 [Concomitant]
     Active Substance: ERGOCALCIFEROL
     Dosage: 1000 IE 1?0?0
  5. ATENOLOL. [Concomitant]
     Active Substance: ATENOLOL
     Dosage: 50 MG 1?0?01

REACTIONS (1)
  - Vena cava thrombosis [Recovered/Resolved]

NARRATIVE: CASE EVENT DATE: 20170315
